FAERS Safety Report 11590063 (Version 1)
Quarter: 2015Q4

REPORT INFORMATION
  Report Type: Report from Study
  Country: HU (occurrence: HU)
  Receive Date: 20151002
  Receipt Date: 20151002
  Transmission Date: 20160304
  Serious: Yes (Death, Hospitalization)
  Sender: FDA-Public Use
  Company Number: HU-BAYER-2015-387220

PATIENT
  Age: 67 Year
  Weight: 64 kg

DRUGS (9)
  1. NEXAVAR [Suspect]
     Active Substance: SORAFENIB
     Indication: HEPATOCELLULAR CARCINOMA
     Dosage: DAILY DOSE 600 MG
     Route: 048
     Dates: start: 20150707, end: 20150808
  2. BONEFOS [Concomitant]
     Active Substance: CLODRONATE DISODIUM
  3. KALDYUM [Concomitant]
     Active Substance: POTASSIUM CHLORIDE
  4. MEFORAL [Concomitant]
  5. LOKREN [Concomitant]
     Active Substance: BETAXOLOL HYDROCHLORIDE
  6. FUROSEMID [Concomitant]
     Active Substance: FUROSEMIDE
  7. CLEXANE [Concomitant]
     Active Substance: ENOXAPARIN SODIUM
  8. CORDARONE [Concomitant]
     Active Substance: AMIODARONE HYDROCHLORIDE
  9. MEMORIL [Concomitant]

REACTIONS (9)
  - Fatigue [Not Recovered/Not Resolved]
  - Asthenia [Not Recovered/Not Resolved]
  - Nausea [None]
  - Diarrhoea [None]
  - Decreased appetite [Not Recovered/Not Resolved]
  - Pyrexia [Not Recovered/Not Resolved]
  - Pneumonia [Fatal]
  - Vomiting [None]
  - Diarrhoea [Recovered/Resolved]

NARRATIVE: CASE EVENT DATE: 20150808
